FAERS Safety Report 16427254 (Version 1)
Quarter: 2019Q2

REPORT INFORMATION
  Report Type: Spontaneous
  Country: US (occurrence: US)
  Receive Date: 20190613
  Receipt Date: 20190613
  Transmission Date: 20190711
  Serious: Yes (Hospitalization)
  Sender: FDA-Public Use
  Company Number: US-TEVA-2019-US-1062437

PATIENT
  Age: 12 Year
  Sex: Female

DRUGS (2)
  1. FLECAINIDE [Suspect]
     Active Substance: FLECAINIDE
     Indication: OVERDOSE
     Route: 048
  2. DILTIAZEM ER [Suspect]
     Active Substance: DILTIAZEM
     Indication: OVERDOSE
     Route: 048

REACTIONS (2)
  - Shock [Recovering/Resolving]
  - Overdose [Recovering/Resolving]
